FAERS Safety Report 10244017 (Version 2)
Quarter: 2014Q3

REPORT INFORMATION
  Report Type: Other
  Country: DK (occurrence: US)
  Receive Date: 20140618
  Receipt Date: 20140701
  Transmission Date: 20150326
  Serious: Yes (Death, Hospitalization)
  Sender: FDA-Public Use
  Company Number: US-FRI-1000068221

PATIENT
  Age: 84 Year
  Sex: Female

DRUGS (3)
  1. CITALOPRAM [Suspect]
     Active Substance: CITALOPRAM HYDROBROMIDE
     Dosage: 20 MG
  2. POLYETHYLENE GLYCOL [Suspect]
     Active Substance: POLYETHYLENE GLYCOLS
  3. MEMANTINE [Suspect]
     Active Substance: MEMANTINE
     Dosage: 10 MG TWICE DAILY

REACTIONS (2)
  - Convulsion [Fatal]
  - Drug interaction [Unknown]
